FAERS Safety Report 5207807-1 (Version None)
Quarter: 2006Q4

REPORT INFORMATION
  Report Type: 
  Country: None (occurrence: None)
  Receive Date: 20061030
  Receipt Date: 20060814
  Transmission Date: 20070319
  Serious: No
  Sender: FDA-Public Use
  Company Number: 2005CT000332

PATIENT
  Age: 34 Year
  Sex: Female
  Weight: 74.8435 kg

DRUGS (17)
  1. VENTAVIS [Suspect]
     Indication: PULMONARY HYPERTENSION
     Dosage: SEE IMAGE, INH
     Route: 055
     Dates: start: 20050603, end: 20050603
  2. VENTAVIS [Suspect]
     Indication: PULMONARY HYPERTENSION
     Dosage: SEE IMAGE, INH
     Route: 055
     Dates: start: 20050603, end: 20060111
  3. VENTAVIS [Suspect]
  4. VENTAVIS [Suspect]
  5. VENTAVIS [Suspect]
  6. VENTAVIS [Suspect]
  7. VENTAVIS [Concomitant]
  8. VENTAVIS [Suspect]
  9. VENTAVIS [Suspect]
  10. BOSENTAN [Concomitant]
  11. POTASSIUM CHLORIDE [Concomitant]
  12. GABAPENTIN [Concomitant]
  13. AMIODARONE HCL [Concomitant]
  14. LEVOTHYROXINE SODIUM [Concomitant]
  15. TORSEMIDE [Concomitant]
  16. SPIRONOLACTONE [Concomitant]
  17. HYDROCHLOROTHIAZIDE [Concomitant]

REACTIONS (7)
  - CHEST PAIN [None]
  - COUGH [None]
  - DIZZINESS [None]
  - DYSPNOEA [None]
  - FATIGUE [None]
  - HEADACHE [None]
  - PULMONARY HYPERTENSION [None]
